FAERS Safety Report 16287182 (Version 1)
Quarter: 2019Q2

REPORT INFORMATION
  Report Type: Spontaneous
  Country: IT (occurrence: IT)
  Receive Date: 20190508
  Receipt Date: 20190508
  Transmission Date: 20190711
  Serious: Yes (Other)
  Sender: FDA-Public Use
  Company Number: IT-BAXTER-2016BAX049577

PATIENT
  Age: 10 Year
  Sex: Female

DRUGS (1)
  1. METRONIDAZOLO BAXTER S.P.A. [Suspect]
     Active Substance: METRONIDAZOLE
     Indication: HYPERGLYCINAEMIA
     Dosage: 10 MG/KG/D, 3 WK/MO
     Route: 065

REACTIONS (4)
  - Peripheral sensory neuropathy [Unknown]
  - Axonal neuropathy [Unknown]
  - Gait disturbance [Unknown]
  - Neurotoxicity [Unknown]
